FAERS Safety Report 4288546-0 (Version None)
Quarter: 2004Q1

REPORT INFORMATION
  Report Type: 
  Country: None (occurrence: None)
  Receive Date: 20040205
  Receipt Date: 20040128
  Transmission Date: 20041129
  Serious: Yes (Hospitalization)
  Sender: FDA-Public Use
  Company Number: 2003185446JP

PATIENT
  Age: 71 Year
  Sex: Male
  Weight: 55 kg

DRUGS (10)
  1. CYTOTEC [Suspect]
     Indication: GASTRIC ULCER
     Dosage: 200 UG, QID, ORAL
     Route: 048
     Dates: start: 20031015, end: 20031031
  2. NIZATIDINE [Suspect]
     Indication: GASTRIC ULCER
     Dosage: 300MG/DAY
     Dates: start: 20031016, end: 20031024
  3. CAMLEED (ENPROSTIL) [Suspect]
     Indication: GASTRIC ULCER
     Dosage: 50 UG, ORAL
     Route: 048
     Dates: start: 20031024, end: 20031031
  4. ATARAX [Suspect]
     Indication: PRURITUS
     Dosage: 50 MG/DAY, IV
     Route: 042
     Dates: start: 20031014, end: 20031031
  5. SILECE (FLUNITRAZEPAM) [Concomitant]
     Indication: INSOMNIA
     Dosage: 2MG/DAY, IV
     Route: 042
     Dates: start: 20031017, end: 20031024
  6. ULCERLMIN [Concomitant]
  7. PREDNISOLONE [Concomitant]
  8. CYTOTEC [Concomitant]
  9. NIZATIDINE [Concomitant]
  10. ATARAX [Concomitant]

REACTIONS (12)
  - BRADYARRHYTHMIA [None]
  - BRADYCARDIA [None]
  - CHEST PAIN [None]
  - EXTRASYSTOLES [None]
  - GASTRIC CANCER [None]
  - HYPERTENSION [None]
  - INSOMNIA [None]
  - JAUNDICE CHOLESTATIC [None]
  - PANCREATIC CARCINOMA [None]
  - PRINZMETAL ANGINA [None]
  - PRURITUS [None]
  - WEIGHT DECREASED [None]
